FAERS Safety Report 9944042 (Version 1)
Quarter: 2014Q1

REPORT INFORMATION
  Report Type: Spontaneous
  Country: JP (occurrence: JP)
  Receive Date: 20140303
  Receipt Date: 20140303
  Transmission Date: 20141002
  Serious: Yes (Hospitalization)
  Sender: FDA-Public Use
  Company Number: JP-MERCK-1402JPN011718

PATIENT
  Age: 69 Year
  Sex: Female

DRUGS (9)
  1. FAMOTIDINE [Suspect]
     Indication: PRODUCT USED FOR UNKNOWN INDICATION
     Dosage: 200 MG, UNKNOWN/D
     Route: 048
     Dates: start: 201304, end: 201304
  2. ZOLPIDEM TARTRATE [Suspect]
     Indication: PRODUCT USED FOR UNKNOWN INDICATION
     Dosage: 32 DF, UNKNOWN/D
     Route: 048
     Dates: start: 201304, end: 201304
  3. QUETIAPINE FUMARATE [Suspect]
     Indication: PRODUCT USED FOR UNKNOWN INDICATION
     Dosage: 700 MG, UNKNOWN/D
     Route: 048
     Dates: start: 201304, end: 201304
  4. ATORVASTATIN CALCIUM [Suspect]
     Indication: PRODUCT USED FOR UNKNOWN INDICATION
     Dosage: 12 DF, UNKNOWN/D
     Route: 048
     Dates: start: 201304, end: 201304
  5. BENIDIPINE [Suspect]
     Indication: PRODUCT USED FOR UNKNOWN INDICATION
     Dosage: 20 DF, UNKNOWN/D
     Dates: start: 201304, end: 201304
  6. CYMBALTA [Suspect]
     Indication: PRODUCT USED FOR UNKNOWN INDICATION
     Dosage: 560 MG, UNKNOWN/D
     Route: 048
     Dates: start: 201304, end: 201304
  7. NICORANDIL [Suspect]
     Indication: PRODUCT USED FOR UNKNOWN INDICATION
     Dosage: 240 MG, UNKNOWN/D
     Route: 048
     Dates: start: 201304, end: 201304
  8. VALPROATE SODIUM [Suspect]
     Dosage: 5600 MG, QD
     Route: 048
     Dates: start: 201304, end: 201304
  9. OLANZAPINE [Suspect]
     Indication: PRODUCT USED FOR UNKNOWN INDICATION
     Dosage: 1 DF, UNKNOWN/D
     Route: 048
     Dates: start: 201304, end: 201304

REACTIONS (2)
  - Hypoxia [Unknown]
  - Overdose [Unknown]
